FAERS Safety Report 16778209 (Version 1)
Quarter: 2019Q3

REPORT INFORMATION
  Report Type: Spontaneous
  Country: US (occurrence: US)
  Receive Date: 20190905
  Receipt Date: 20190905
  Transmission Date: 20191005
  Serious: No
  Sender: FDA-Public Use
  Company Number: US-WELLSTAT THERAPEUTICS CORPORATION-2074090

PATIENT
  Age: 14 Year
  Sex: Male

DRUGS (2)
  1. CLONIDINE. [Concomitant]
     Active Substance: CLONIDINE
  2. XURIDEN [Suspect]
     Active Substance: URIDINE TRIACETATE
     Indication: OROTICACIDURIA CONGENITAL
     Route: 048
     Dates: start: 20190508, end: 20190512

REACTIONS (2)
  - No adverse event [None]
  - Incorrect dose administered [Recovered/Resolved]

NARRATIVE: CASE EVENT DATE: 20190508
